FAERS Safety Report 5945462-3 (Version None)
Quarter: 2008Q4

REPORT INFORMATION
  Report Type: 
  Country: None (occurrence: None)
  Receive Date: 20081107
  Receipt Date: 20081028
  Transmission Date: 20090506
  Serious: Yes (Hospitalization)
  Sender: FDA-Public Use
  Company Number: JP-JNJFOC-20070404298

PATIENT
  Sex: Female
  Weight: 66 kg

DRUGS (34)
  1. REMICADE [Suspect]
     Route: 042
  2. REMICADE [Suspect]
     Route: 042
  3. REMICADE [Suspect]
     Route: 042
  4. REMICADE [Suspect]
     Route: 042
  5. REMICADE [Suspect]
     Route: 042
  6. REMICADE [Suspect]
     Route: 042
  7. REMICADE [Suspect]
     Route: 042
  8. REMICADE [Suspect]
     Route: 042
  9. REMICADE [Suspect]
     Route: 042
  10. REMICADE [Suspect]
     Route: 042
  11. REMICADE [Suspect]
     Route: 042
  12. REMICADE [Suspect]
     Route: 042
  13. REMICADE [Suspect]
     Route: 042
  14. REMICADE [Suspect]
     Route: 042
  15. REMICADE [Suspect]
     Route: 042
  16. REMICADE [Suspect]
     Indication: RHEUMATOID ARTHRITIS
     Route: 042
  17. ASPIRIN [Suspect]
     Indication: DRUG USE FOR UNKNOWN INDICATION
     Route: 048
  18. RHEUMATREX [Suspect]
  19. RHEUMATREX [Suspect]
     Indication: RHEUMATOID ARTHRITIS
  20. LOXONIN [Concomitant]
     Route: 048
  21. LOXONIN [Concomitant]
     Indication: RHEUMATOID ARTHRITIS
     Route: 048
  22. SELBEX [Concomitant]
     Route: 048
  23. EURAX [Concomitant]
     Route: 047
  24. URSO 250 [Concomitant]
     Route: 048
  25. METHOTREXATE [Concomitant]
     Route: 048
  26. METHOTREXATE [Concomitant]
     Indication: RHEUMATOID ARTHRITIS
     Route: 048
  27. MOHRUS [Concomitant]
     Indication: RHEUMATOID ARTHRITIS
     Route: 047
  28. SELTOUCH [Concomitant]
     Indication: RHEUMATOID ARTHRITIS
     Route: 047
  29. FOLIAMIN [Concomitant]
     Indication: RHEUMATOID ARTHRITIS
     Route: 048
  30. ISCOTIN [Concomitant]
     Indication: ANTIBIOTIC PROPHYLAXIS
     Route: 048
  31. MOBIC [Concomitant]
     Indication: RHEUMATOID ARTHRITIS
     Route: 048
  32. ACINONE [Concomitant]
     Route: 048
  33. CELECOX [Concomitant]
     Indication: RHEUMATOID ARTHRITIS
  34. OMEPRAL [Concomitant]
     Indication: REFLUX OESOPHAGITIS

REACTIONS (3)
  - GASTROINTESTINAL HAEMORRHAGE [None]
  - LIVER DISORDER [None]
  - REFLUX OESOPHAGITIS [None]
